FAERS Safety Report 6783291-1 (Version None)
Quarter: 2010Q2

REPORT INFORMATION
  Report Type: 
  Country: None (occurrence: None)
  Receive Date: 20100617
  Receipt Date: 20080818
  Transmission Date: 20101027
  Serious: Yes (Death, Congenital Anomaly)
  Sender: FDA-Public Use
  Company Number: LEO-2010-00503

PATIENT
  Sex: Male
  Weight: 0.25 kg

DRUGS (7)
  1. INNOHEP [Suspect]
     Indication: DRUG EXPOSURE DURING PREGNANCY
     Dosage: TRANSPLACENTAL
     Route: 064
     Dates: start: 20040714, end: 20040930
  2. ASPIRIN [Concomitant]
  3. FOLIC ACID [Concomitant]
  4. NIFEDIPINE [Concomitant]
  5. ATENOLOL [Concomitant]
  6. LABETALOL HCL [Concomitant]
  7. NIFEDIPINE [Concomitant]

REACTIONS (3)
  - INTRA-UTERINE DEATH [None]
  - MATERNAL DRUGS AFFECTING FOETUS [None]
  - SKELETON DYSPLASIA [None]
